FAERS Safety Report 16784786 (Version 1)
Quarter: 2019Q3

REPORT INFORMATION
  Report Type: Other
  Country: PT (occurrence: PT)
  Receive Date: 20190909
  Receipt Date: 20190909
  Transmission Date: 20191005
  Serious: Yes (Other)
  Sender: FDA-Public Use
  Company Number: PT-ATLAS PHARMACEUTICALS, LLC-2074174

PATIENT
  Age: 48 Year
  Sex: Female

DRUGS (12)
  1. CHLORDIAZEPOXIDE. [Interacting]
     Active Substance: CHLORDIAZEPOXIDE
     Route: 065
  2. FUROSEMIDE. [Interacting]
     Active Substance: FUROSEMIDE
     Route: 065
  3. ORLISTAT. [Interacting]
     Active Substance: ORLISTAT
     Route: 065
  4. CASCARA SAGRADA [Interacting]
     Active Substance: FRANGULA PURSHIANA BARK
     Route: 065
  5. TOPIRAMATE. [Interacting]
     Active Substance: TOPIRAMATE
     Route: 065
  6. PHENOLPHTHALEIN [Interacting]
     Active Substance: PHENOLPHTHALEIN
     Route: 065
  7. ETHINYLESTRADIOL + GESTODENE [Interacting]
     Active Substance: ETHINYL ESTRADIOL\GESTODENE
     Route: 065
  8. BUPROPION. [Interacting]
     Active Substance: BUPROPION
     Route: 065
  9. CHROMIUM PICOLINATE [Interacting]
     Active Substance: CHROMIUM PICOLINATE
     Route: 065
  10. SENNA [Interacting]
     Active Substance: SENNA LEAF\SENNOSIDES\SENNOSIDES A AND B
     Route: 065
  11. CENTELLA ASIATICA [Interacting]
     Active Substance: CENTELLA ASIATICA
     Route: 065
  12. METFORMIN [Suspect]
     Active Substance: METFORMIN HYDROCHLORIDE
     Indication: WEIGHT INCREASED
     Route: 065

REACTIONS (4)
  - Product use in unapproved indication [Unknown]
  - Cerebral venous thrombosis [Unknown]
  - Intentional product misuse [Unknown]
  - Drug interaction [Unknown]
